FAERS Safety Report 17809541 (Version 2)
Quarter: 2020Q2

REPORT INFORMATION
  Report Type: Report from Study
  Country: US (occurrence: US)
  Receive Date: 20200520
  Receipt Date: 20200616
  Transmission Date: 20200714
  Serious: Yes (Death)
  Sender: FDA-Public Use
  Company Number: US-ACTELION-A-US2020-205019

PATIENT
  Age: 69 Year
  Sex: Female
  Weight: 63.95 kg

DRUGS (1)
  1. VELETRI [Suspect]
     Active Substance: EPOPROSTENOL
     Indication: PULMONARY ARTERIAL HYPERTENSION
     Dosage: 38 NG/KG, PER MIN
     Route: 042
     Dates: start: 201708, end: 20200507

REACTIONS (2)
  - Infusion site erythema [Unknown]
  - Death [Fatal]

NARRATIVE: CASE EVENT DATE: 20200507
